FAERS Safety Report 8722737 (Version 2)
Quarter: 2012Q4

REPORT INFORMATION
  Report Type: 
  Country: FR (occurrence: FR)
  Receive Date: 20120814
  Receipt Date: 20121002
  Transmission Date: 20130627
  Serious: Yes (Hospitalization)
  Sender: FDA-Public Use
  Company Number: FR-JNJFOC-20120800107

PATIENT
  Age: 60 Year
  Sex: Male

DRUGS (1)
  1. ZYTIGA [Suspect]
     Indication: PROSTATE CANCER METASTATIC
     Route: 048
     Dates: start: 20120605, end: 201207

REACTIONS (3)
  - Pulmonary oedema [Not Recovered/Not Resolved]
  - Cauda equina syndrome [Unknown]
  - Hypokalaemia [Not Recovered/Not Resolved]
